FAERS Safety Report 6054610-9 (Version None)
Quarter: 2009Q1

REPORT INFORMATION
  Report Type: 
  Country: None (occurrence: None)
  Receive Date: 20090127
  Receipt Date: 20081022
  Transmission Date: 20090719
  Serious: Yes (Other)
  Sender: FDA-Public Use
  Company Number: GB-GILEAD-2008-0019018

PATIENT

DRUGS (2)
  1. TRUVADA [Suspect]
  2. NEVIRAPINE [Concomitant]

REACTIONS (1)
  - TREATMENT FAILURE [None]
